FAERS Safety Report 16055999 (Version 2)
Quarter: 2019Q1

REPORT INFORMATION
  Report Type: Spontaneous
  Country: US (occurrence: US)
  Receive Date: 20190311
  Receipt Date: 20190328
  Transmission Date: 20190418
  Serious: Yes (Other)
  Sender: FDA-Public Use
  Company Number: US-AUROBINDO-AUR-APL-2019-012956

PATIENT

DRUGS (1)
  1. VALSARTAN TABLETS [Suspect]
     Active Substance: VALSARTAN
     Indication: HYPERTENSION
     Dosage: UNK 2 TABLET PER DAY
     Route: 065

REACTIONS (3)
  - Liver disorder [Recovered/Resolved]
  - Apparent death [Recovered/Resolved]
  - Renal disorder [Recovered/Resolved]
